FAERS Safety Report 22123020 (Version 1)
Quarter: 2023Q1

REPORT INFORMATION
  Report Type: Spontaneous
  Country: JP (occurrence: JP)
  Receive Date: 20230322
  Receipt Date: 20230322
  Transmission Date: 20230418
  Serious: Yes (Hospitalization, Other)
  Sender: FDA-Public Use
  Company Number: JP-BAXTER-2023BAX014606

PATIENT
  Age: 77 Year
  Sex: Male
  Weight: 72 kg

DRUGS (1)
  1. REGUNEAL LCA [Suspect]
     Active Substance: CALCIUM CHLORIDE\DEXTROSE MONOHYDRATE\HYDROCHLORIC ACID\MAGNESIUM CHLORIDE\SODIUM BICARBONATE\SODIUM
     Indication: Renal failure
     Route: 033

REACTIONS (3)
  - Peritonitis bacterial [Recovering/Resolving]
  - Abdominal pain [Recovering/Resolving]
  - Peritoneal cloudy effluent [Recovering/Resolving]

NARRATIVE: CASE EVENT DATE: 20230302
